FAERS Safety Report 19811887 (Version 1)
Quarter: 2021Q3

REPORT INFORMATION
  Report Type: Spontaneous
  Country: SE (occurrence: SE)
  Receive Date: 20210910
  Receipt Date: 20210910
  Transmission Date: 20211014
  Serious: Yes (Life-Threatening, Hospitalization, Other)
  Sender: FDA-Public Use
  Company Number: SE-ABBVIE-21K-150-4069634-00

PATIENT
  Age: 10 Year
  Sex: Male

DRUGS (3)
  1. LAMOTRIGINE. [Suspect]
     Active Substance: LAMOTRIGINE
     Indication: PRODUCT USED FOR UNKNOWN INDICATION
     Route: 048
     Dates: start: 199904, end: 20000205
  2. KAVEPENIN [Concomitant]
     Active Substance: PHENOXYMETHYLPENICILLIN CALCIUM
     Indication: PRODUCT USED FOR UNKNOWN INDICATION
     Route: 048
     Dates: start: 199912, end: 199912
  3. ERGENYL [Suspect]
     Active Substance: VALPROIC ACID
     Indication: EPILEPSY
     Route: 048
     Dates: start: 199912, end: 20000203

REACTIONS (3)
  - Stevens-Johnson syndrome [Not Recovered/Not Resolved]
  - Oculomucocutaneous syndrome [Not Recovered/Not Resolved]
  - Conjunctivitis [Not Recovered/Not Resolved]

NARRATIVE: CASE EVENT DATE: 20000201
